FAERS Safety Report 19143808 (Version 1)
Quarter: 2021Q2

REPORT INFORMATION
  Report Type: Spontaneous
  Country: GB (occurrence: GB)
  Receive Date: 20210415
  Receipt Date: 20210415
  Transmission Date: 20210717
  Serious: Yes (Other)
  Sender: FDA-Public Use
  Company Number: GB-SUN PHARMACEUTICAL INDUSTRIES LTD-2021RR-291586

PATIENT
  Age: 71 Year
  Sex: Female

DRUGS (4)
  1. NORADRENALINE [Suspect]
     Active Substance: NOREPINEPHRINE
     Indication: ACUTE KIDNEY INJURY
  2. DOBUTAMINE [Suspect]
     Active Substance: DOBUTAMINE HYDROCHLORIDE
     Indication: CARDIAC FAILURE CONGESTIVE
     Dosage: 15 MICROGRAM/KG/MIN
     Route: 065
  3. DOBUTAMINE [Suspect]
     Active Substance: DOBUTAMINE HYDROCHLORIDE
     Indication: ACUTE KIDNEY INJURY
  4. NORADRENALINE [Suspect]
     Active Substance: NOREPINEPHRINE
     Indication: CARDIAC FAILURE CONGESTIVE
     Dosage: 0.4 MICROGRAM/KG/MIN
     Route: 065

REACTIONS (1)
  - Drug ineffective [Unknown]
